FAERS Safety Report 7620847-8 (Version None)
Quarter: 2011Q3

REPORT INFORMATION
  Report Type: 
  Country: None (occurrence: None)
  Receive Date: 20110719
  Receipt Date: 20110706
  Transmission Date: 20111222
  Serious: Yes (Other)
  Sender: FDA-Public Use
  Company Number: JP-GENENTECH-321425

PATIENT

DRUGS (1)
  1. LUCENTIS [Suspect]
     Indication: RETINAL DEGENERATION
     Route: 031

REACTIONS (1)
  - RETINAL TEAR [None]
